FAERS Safety Report 8599064-3 (Version None)
Quarter: 2012Q3

REPORT INFORMATION
  Report Type: 
  Country: None (occurrence: None)
  Receive Date: 20120816
  Receipt Date: 20120724
  Transmission Date: 20120928
  Serious: Yes (Hospitalization)
  Sender: FDA-Public Use
  Company Number: SE-ROCHE-1101383

PATIENT

DRUGS (4)
  1. AVASTIN [Suspect]
     Indication: COLON CANCER
     Dosage: DATE OF LAST DOSE: 13/JUL/2012
     Dates: start: 20120417
  2. IRINOTECAN HYDROCHLORIDE [Suspect]
     Indication: COLON CANCER
     Dosage: DATE OF LAST DOSE: 13/JUL/2012
     Dates: start: 20120417
  3. LEUCOVORIN CALCIUM [Suspect]
     Indication: COLON CANCER
     Dosage: DATE OF LAST DOSE: 13/JUL/2012
     Dates: start: 20120417
  4. FLUOROURACIL [Suspect]
     Indication: COLON CANCER
     Dosage: DATE OF LAST DOSE: 13/JUL/2012
     Dates: start: 20120417

REACTIONS (1)
  - BLOOD CREATININE INCREASED [None]
